FAERS Safety Report 23886026 (Version 2)
Quarter: 2024Q2

REPORT INFORMATION
  Report Type: Spontaneous
  Country: US (occurrence: US)
  Receive Date: 20240522
  Receipt Date: 20240611
  Transmission Date: 20240716
  Serious: Yes (Death, Hospitalization, Other)
  Sender: FDA-Public Use
  Company Number: US-GILEAD-2024-0673212

PATIENT
  Age: 80 Year
  Sex: Female

DRUGS (1)
  1. YESCARTA [Suspect]
     Active Substance: AXICABTAGENE CILOLEUCEL
     Indication: Diffuse large B-cell lymphoma
     Dosage: 68 ML, 2.0 X 10^6 ANTI-CD19 CAR T CELLS/KG
     Route: 042
     Dates: start: 20240411, end: 20240411

REACTIONS (25)
  - Acute respiratory failure [Fatal]
  - Cardiac failure acute [Fatal]
  - Lymphoproliferative disorder [Not Recovered/Not Resolved]
  - T-cell lymphoma [Unknown]
  - Pancytopenia [Unknown]
  - Liver function test increased [Unknown]
  - Fibrin D dimer increased [Unknown]
  - Blood fibrinogen decreased [Unknown]
  - Pleural effusion [Unknown]
  - Haemophagocytic lymphohistiocytosis [Recovering/Resolving]
  - Immune effector cell-associated neurotoxicity syndrome [Recovered/Resolved]
  - Cytokine release syndrome [Recovered/Resolved]
  - Bacterial infection [Unknown]
  - Mental status changes [Recovered/Resolved]
  - Encephalopathy [Unknown]
  - Cytomegalovirus infection reactivation [Recovered/Resolved]
  - Hypocalcaemia [Unknown]
  - Hyponatraemia [Unknown]
  - Haemophagocytic lymphohistiocytosis [Unknown]
  - Hypokalaemia [Recovered/Resolved]
  - Serum ferritin increased [Unknown]
  - Blood lactic acid increased [Unknown]
  - Atrial fibrillation [Unknown]
  - Acute pulmonary oedema [Unknown]
  - Renal impairment [Unknown]

NARRATIVE: CASE EVENT DATE: 20240415
